FAERS Safety Report 9445250 (Version 1)
Quarter: 2013Q3

REPORT INFORMATION
  Report Type: Spontaneous
  Country: BR (occurrence: BR)
  Receive Date: 20130807
  Receipt Date: 20130807
  Transmission Date: 20140515
  Serious: Yes (Hospitalization)
  Sender: FDA-Public Use
  Company Number: BR-ROCHE-1255079

PATIENT
  Sex: Female

DRUGS (3)
  1. MABTHERA [Suspect]
     Indication: RHEUMATOID ARTHRITIS
     Route: 065
  2. ACTEMRA [Suspect]
     Indication: RHEUMATOID ARTHRITIS
     Route: 065
     Dates: start: 20091008
  3. METHOTREXATE [Concomitant]

REACTIONS (12)
  - Pyrexia [Unknown]
  - Pancytopenia [Unknown]
  - Vomiting [Unknown]
  - Diarrhoea [Unknown]
  - Arthralgia [Unknown]
  - Gingival inflammation [Unknown]
  - Haematochezia [Unknown]
  - Amnesia [Recovered/Resolved]
  - Gastrointestinal disorder [Unknown]
  - Drug ineffective [Unknown]
  - Rash [Unknown]
  - Wound [Unknown]
